FAERS Safety Report 6920172-4 (Version None)
Quarter: 2010Q3

REPORT INFORMATION
  Report Type: 
  Country: None (occurrence: None)
  Receive Date: 20100809
  Receipt Date: 20100720
  Transmission Date: 20110219
  Serious: Yes (Life-Threatening)
  Sender: FDA-Public Use
  Company Number: B0380963A

PATIENT
  Sex: Female
  Weight: 89.8122 kg

DRUGS (4)
  1. PLACEBO (FORMULATION UNKNOWN) (PLACEBO) [Suspect]
     Indication: PROPHYLAXIS OF NAUSEA AND VOMITING
     Dosage: SINGLE DOSE / ORAL
     Route: 048
     Dates: start: 20050511, end: 20050511
  2. PLACEBO (FORMULATION UNKNOWN) (PLACEBO) [Suspect]
     Indication: VOMITING
     Dosage: SINGLE DOSE / ORAL
     Route: 048
     Dates: start: 20050511, end: 20050511
  3. ZOFRAN [Suspect]
     Indication: PROPHYLAXIS OF NAUSEA AND VOMITING
     Dosage: 4 MG / SINGLE DOSE / INTRAVENOUS
     Route: 042
     Dates: start: 20050511
  4. ZOFRAN [Suspect]
     Indication: VOMITING
     Dosage: 4 MG / SINGLE DOSE / INTRAVENOUS
     Route: 042
     Dates: start: 20050511

REACTIONS (2)
  - LACERATION [None]
  - LARGE INTESTINAL HAEMORRHAGE [None]
